FAERS Safety Report 8495392-0 (Version None)
Quarter: 2012Q3

REPORT INFORMATION
  Report Type: 
  Country: None (occurrence: None)
  Receive Date: 20120709
  Receipt Date: 20120702
  Transmission Date: 20120928
  Serious: Yes (Other)
  Sender: FDA-Public Use
  Company Number: US-BAYER-2012-066265

PATIENT
  Age: 15 Year
  Sex: Female
  Weight: 113.38 kg

DRUGS (16)
  1. YAZ [Suspect]
     Indication: MENSTRUATION IRREGULAR
     Dosage: UNK
  2. LORTAB [Concomitant]
  3. OXYCODONE HCL [Concomitant]
  4. COLACE [Concomitant]
  5. YAZ [Suspect]
     Indication: MENORRHAGIA
  6. PENICILLIN VK [Concomitant]
     Dosage: 500 MG, UNK
  7. ALAVERT [Concomitant]
     Indication: MULTIPLE ALLERGIES
  8. TRAMADOL HCL [Concomitant]
  9. ASPIRIN [Concomitant]
  10. HYDROCODONE BITARTRATE + ACETAMINOPHEN [Concomitant]
     Dosage: 5/500 MG
  11. PROCHLORPERAZINE [Concomitant]
     Dosage: 10 MG, UNK
  12. ALEVE [Concomitant]
  13. TYLENOL W/ CODEINE [Concomitant]
  14. CHLORHEXIDINE GLUCONATE [Concomitant]
  15. CELEBREX [Concomitant]
  16. DROSPIRENONE AND ETHINYL ESTRADIOL [Suspect]
     Dosage: UNK

REACTIONS (2)
  - PULMONARY EMBOLISM [None]
  - DEEP VEIN THROMBOSIS [None]
